FAERS Safety Report 6048200-1 (Version None)
Quarter: 2009Q1

REPORT INFORMATION
  Report Type: 
  Country: None (occurrence: None)
  Receive Date: 20090123
  Receipt Date: 20090112
  Transmission Date: 20090719
  Serious: Yes (Hospitalization, Disabling, Other)
  Sender: FDA-Public Use
  Company Number: US-ROCHE-545021

PATIENT
  Sex: Male
  Weight: 83.9 kg

DRUGS (4)
  1. ACCUTANE [Suspect]
     Indication: ACNE
     Route: 065
     Dates: start: 20000411, end: 20000901
  2. ACCUTANE [Suspect]
     Route: 065
     Dates: start: 20011105, end: 20011114
  3. ANTIBIOTIC NOS [Concomitant]
     Dates: start: 19970101
  4. MINOCIN [Concomitant]
     Indication: ACNE
     Dates: start: 20000101

REACTIONS (28)
  - ABDOMINAL PAIN [None]
  - ABSCESS LIMB [None]
  - ALCOHOL ABUSE [None]
  - ANOREXIA [None]
  - ANXIETY [None]
  - BODY DYSMORPHIC DISORDER [None]
  - BULIMIA NERVOSA [None]
  - CELLULITIS [None]
  - COLITIS [None]
  - COLITIS ULCERATIVE [None]
  - COMA [None]
  - CONVULSION [None]
  - DELUSION [None]
  - DEPRESSION [None]
  - ENDODONTIC PROCEDURE [None]
  - GASTROINTESTINAL DISORDER [None]
  - HEPATOTOXICITY [None]
  - INFLAMMATORY BOWEL DISEASE [None]
  - INSOMNIA [None]
  - IRRITABLE BOWEL SYNDROME [None]
  - KETOACIDOSIS [None]
  - OBSESSIVE-COMPULSIVE DISORDER [None]
  - PARANOIA [None]
  - RECTAL HAEMORRHAGE [None]
  - SLEEP APNOEA SYNDROME [None]
  - SOMNOLENCE [None]
  - SUICIDAL IDEATION [None]
  - TYPE 1 DIABETES MELLITUS [None]
